FAERS Safety Report 9678152 (Version 2)
Quarter: 2013Q4

REPORT INFORMATION
  Report Type: Spontaneous
  Country: JP (occurrence: JP)
  Receive Date: 20131108
  Receipt Date: 20131206
  Transmission Date: 20140711
  Serious: Yes (Other)
  Sender: FDA-Public Use
  Company Number: JP-ASTRAZENECA-2013SE80603

PATIENT
  Age: 44 Year
  Sex: Female

DRUGS (6)
  1. ANAPEINE [Suspect]
     Indication: POSTOPERATIVE ANALGESIA
     Dosage: 0.2 %,  5 ML/H ( 10 MG/H)
     Route: 008
  2. MARCAIN SPINAL [Suspect]
     Indication: SPINAL ANAESTHESIA
     Route: 037
  3. FENTANYL [Suspect]
     Indication: SPINAL ANAESTHESIA
     Route: 037
  4. FENTANYL [Suspect]
     Indication: POSTOPERATIVE ANALGESIA
     Route: 037
  5. FENTANYL [Suspect]
     Indication: SPINAL ANAESTHESIA
     Route: 008
  6. FENTANYL [Suspect]
     Indication: POSTOPERATIVE ANALGESIA
     Route: 008

REACTIONS (3)
  - Monoplegia [Recovered/Resolved]
  - Myoclonus [Recovered/Resolved]
  - Hypoaesthesia [Recovered/Resolved]
